FAERS Safety Report 22166880 (Version 1)
Quarter: 2023Q2

REPORT INFORMATION
  Report Type: Spontaneous
  Country: US (occurrence: None)
  Receive Date: 20230401
  Receipt Date: 20230401
  Transmission Date: 20230721
  Serious: Yes (Disabling)
  Sender: FDA-Public Use
  Company Number: None

PATIENT
  Age: 35 Year
  Sex: Female

DRUGS (4)
  1. DEPO-PROVERA [Suspect]
     Active Substance: MEDROXYPROGESTERONE ACETATE
     Indication: Endometriosis
     Dates: start: 20220607
  2. Vitamins D [Concomitant]
  3. Vitamins K [Concomitant]
  4. Vitamins B12 [Concomitant]

REACTIONS (23)
  - Brain fog [None]
  - Pain [None]
  - Anxiety [None]
  - Panic attack [None]
  - Hot flush [None]
  - Feeling abnormal [None]
  - Mental status changes [None]
  - Hypoaesthesia [None]
  - Abdominal pain [None]
  - Nausea [None]
  - Hypophagia [None]
  - Migraine [None]
  - Fatigue [None]
  - Anger [None]
  - Irritability [None]
  - Asthenia [None]
  - Arthropathy [None]
  - Malaise [None]
  - Drug withdrawal syndrome [None]
  - Myalgia [None]
  - Muscular weakness [None]
  - Food intolerance [None]
  - Gait disturbance [None]

NARRATIVE: CASE EVENT DATE: 20220607
